FAERS Safety Report 4853194-8 (Version None)
Quarter: 2005Q4

REPORT INFORMATION
  Report Type: 
  Country: None (occurrence: None)
  Receive Date: 20051214
  Receipt Date: 20051201
  Transmission Date: 20060501
  Serious: Yes (Hospitalization)
  Sender: FDA-Public Use
  Company Number: GR-ROCHE-427388

PATIENT
  Age: 36 Year
  Sex: Female

DRUGS (2)
  1. RIBAVIRIN [Suspect]
     Route: 048
  2. PEG-INTERFERON ALFA 2B [Suspect]
     Route: 058

REACTIONS (14)
  - AGITATION [None]
  - AMNESIA [None]
  - BLOOD INSULIN DECREASED [None]
  - CONFUSIONAL STATE [None]
  - DIABETES MELLITUS [None]
  - DISORIENTATION [None]
  - ENCEPHALOPATHY [None]
  - GRAND MAL CONVULSION [None]
  - HALLUCINATION, VISUAL [None]
  - INSULIN C-PEPTIDE DECREASED [None]
  - LETHARGY [None]
  - NUCLEAR MAGNETIC RESONANCE IMAGING BRAIN ABNORMAL [None]
  - PANIC ATTACK [None]
  - SCREAMING [None]
